FAERS Safety Report 8975556 (Version 1)
Quarter: 2012Q4

REPORT INFORMATION
  Report Type: 
  Country: US (occurrence: US)
  Receive Date: 20121219
  Receipt Date: 20121219
  Transmission Date: 20130627
  Serious: Yes (Other)
  Sender: FDA-Public Use
  Company Number: US-PFIZER INC-2012320741

PATIENT
  Age: 45 Year
  Sex: Male
  Weight: 92.97 kg

DRUGS (1)
  1. CHANTIX [Suspect]
     Indication: SMOKING CESSATION THERAPY
     Dosage: 0.5 mg, 1x/day
     Route: 048
     Dates: start: 201112, end: 2012

REACTIONS (7)
  - Mania [Unknown]
  - Agitation [Not Recovered/Not Resolved]
  - Blood cholesterol increased [Unknown]
  - Sleep disorder [Unknown]
  - Anxiety [Unknown]
  - Mental disorder [Not Recovered/Not Resolved]
  - Personality change [Not Recovered/Not Resolved]
